FAERS Safety Report 11276328 (Version 5)
Quarter: 2015Q4

REPORT INFORMATION
  Report Type: Spontaneous
  Country: US (occurrence: US)
  Receive Date: 20150716
  Receipt Date: 20151009
  Transmission Date: 20160304
  Serious: No
  Sender: FDA-Public Use
  Company Number: US-PFIZER INC-2015185580

PATIENT
  Age: 71 Year
  Sex: Male
  Weight: 79.2 kg

DRUGS (13)
  1. ASPIRIN. [Concomitant]
     Active Substance: ASPIRIN
     Dosage: UNK
  2. GEMFIBROZIL. [Concomitant]
     Active Substance: GEMFIBROZIL
     Indication: BLOOD CHOLESTEROL
     Dosage: 600 MG, 2X/DAY
  3. FLECAINIDE [Concomitant]
     Active Substance: FLECAINIDE
     Dosage: 75 MG, DAILY
     Dates: end: 20150608
  4. LORAZEPAM. [Concomitant]
     Active Substance: LORAZEPAM
     Dosage: UNK
  5. ATIVAN [Concomitant]
     Active Substance: LORAZEPAM
  6. VERAPAMIL [Concomitant]
     Active Substance: VERAPAMIL HYDROCHLORIDE
     Indication: HYPERTENSION
     Dosage: UNK, DAILY
  7. ESTER-C [Concomitant]
     Active Substance: CALCIUM\VITAMINS
     Dosage: UNK
     Dates: end: 20150608
  8. LASIX [Concomitant]
     Active Substance: FUROSEMIDE
     Dosage: UNK
  9. SUTENT [Suspect]
     Active Substance: SUNITINIB MALATE
     Dosage: 50 MG, 1X/DAY (50MG CAPSULE IN THE MORNING BY MOUTH)
     Route: 048
     Dates: start: 20150609, end: 20150706
  10. SUTENT [Suspect]
     Active Substance: SUNITINIB MALATE
     Dosage: 50 MG, CYCLIC (28 DAYS ON/14 DAYS OFF)
     Dates: start: 20150609, end: 20150817
  11. XALATAN [Concomitant]
     Active Substance: LATANOPROST
     Dosage: (0.005 % EACH EYE )
  12. SUTENT [Suspect]
     Active Substance: SUNITINIB MALATE
     Indication: METASTATIC RENAL CELL CARCINOMA
     Dosage: 50 MG, DAILY (FOR 28 DAYS) (ONCE A DAY IN THE MORNING)
     Route: 048
     Dates: start: 201506, end: 201506
  13. PROTONIX [Concomitant]
     Active Substance: PANTOPRAZOLE SODIUM
     Dosage: 40 MG, DAILY
     Dates: end: 20150626

REACTIONS (22)
  - Gingival pain [Not Recovered/Not Resolved]
  - Hair texture abnormal [Unknown]
  - Blood potassium decreased [Recovered/Resolved]
  - Pallor [Unknown]
  - Hair colour changes [Unknown]
  - Pain in extremity [Recovering/Resolving]
  - Dry skin [Recovering/Resolving]
  - Diarrhoea [Unknown]
  - Dry mouth [Not Recovered/Not Resolved]
  - Hyperaesthesia [Recovering/Resolving]
  - Dyspepsia [Recovering/Resolving]
  - Decreased appetite [Recovering/Resolving]
  - Skin disorder [Unknown]
  - Oral pain [Unknown]
  - Weight decreased [Unknown]
  - Erythema [Recovering/Resolving]
  - Glossodynia [Not Recovered/Not Resolved]
  - Dysgeusia [Unknown]
  - Fatigue [Unknown]
  - Skin fissures [Recovering/Resolving]
  - Lethargy [Recovered/Resolved]
  - Palmar-plantar erythrodysaesthesia syndrome [Unknown]

NARRATIVE: CASE EVENT DATE: 201506
